FAERS Safety Report 8950212 (Version 1)
Quarter: 2012Q4

REPORT INFORMATION
  Report Type: 
  Country: US (occurrence: US)
  Receive Date: 20121205
  Receipt Date: 20121205
  Transmission Date: 20130627
  Serious: No
  Sender: FDA-Public Use
  Company Number: US-ASTELLAS-2011US008756

PATIENT
  Sex: Female
  Weight: 75 kg

DRUGS (4)
  1. TARCEVA [Suspect]
     Indication: NON-SMALL CELL LUNG CANCER
     Dosage: 100 mg, UID/QD
     Route: 048
     Dates: start: 20080424
  2. TARCEVA [Suspect]
     Dosage: 100 mg, UID/QD
     Route: 048
     Dates: start: 201004
  3. TARCEVA [Suspect]
     Dosage: 100 mg, qod
     Route: 048
     Dates: end: 201111
  4. TARCEVA [Suspect]
     Dosage: 100 mg, qod
     Route: 048
     Dates: start: 20111202

REACTIONS (10)
  - Incorrect dose administered [Unknown]
  - Nasal dryness [Unknown]
  - Diarrhoea [Unknown]
  - Vomiting [Recovered/Resolved]
  - Insomnia [Recovered/Resolved]
  - Weight decreased [Recovered/Resolved]
  - Dermatitis acneiform [Recovering/Resolving]
  - Epistaxis [Recovered/Resolved]
  - Onychoclasis [Recovered/Resolved]
  - Dry skin [Unknown]
